FAERS Safety Report 23317981 (Version 3)
Quarter: 2024Q1

REPORT INFORMATION
  Report Type: Spontaneous
  Country: JP (occurrence: JP)
  Receive Date: 20231219
  Receipt Date: 20240103
  Transmission Date: 20240410
  Serious: Yes (Hospitalization, Other)
  Sender: FDA-Public Use
  Company Number: JP-SAKK-2023SA386086AA

PATIENT
  Age: 83 Year
  Sex: Female

DRUGS (2)
  1. GLYBURIDE [Suspect]
     Active Substance: GLYBURIDE
     Indication: Type 2 diabetes mellitus
     Dosage: 2.5 MG
     Route: 065
  2. SAXAGLIPTIN [Concomitant]
     Active Substance: SAXAGLIPTIN
     Indication: Type 2 diabetes mellitus
     Dosage: 2.5 MG
     Route: 065

REACTIONS (3)
  - Hypoglycaemic encephalopathy [Not Recovered/Not Resolved]
  - Altered state of consciousness [Not Recovered/Not Resolved]
  - Hypoglycaemic coma [Not Recovered/Not Resolved]
